FAERS Safety Report 18658051 (Version 1)
Quarter: 2020Q4

REPORT INFORMATION
  Report Type: Spontaneous
  Country: FR (occurrence: FR)
  Receive Date: 20201224
  Receipt Date: 20201224
  Transmission Date: 20210114
  Serious: Yes (Hospitalization)
  Sender: FDA-Public Use
  Company Number: FR-TEVA-2020-FR-1860235

PATIENT
  Age: 62 Year
  Sex: Female
  Weight: 103 kg

DRUGS (19)
  1. CORDARONE [Concomitant]
     Active Substance: AMIODARONE HYDROCHLORIDE
  2. RACECADOTRIL [Concomitant]
     Active Substance: RACECADOTRIL
  3. ECONAZOLE. [Concomitant]
     Active Substance: ECONAZOLE NITRATE
  4. CALCIUM (CARBONATE DE) [Concomitant]
     Active Substance: CALCIUM CARBONATE
  5. DELURSAN [Concomitant]
     Active Substance: URSODIOL
  6. CRESTOR [Concomitant]
     Active Substance: ROSUVASTATIN CALCIUM
  7. BISOCE [Concomitant]
     Active Substance: BISOPROLOL
  8. SYMBICORT [Concomitant]
     Active Substance: BUDESONIDE\FORMOTEROL FUMARATE DIHYDRATE
  9. FUROSEMIDE. [Concomitant]
     Active Substance: FUROSEMIDE
  10. PANTOPRAZOLE [Suspect]
     Active Substance: PANTOPRAZOLE
     Indication: PRODUCT USED FOR UNKNOWN INDICATION
     Dosage: 40 MG
     Route: 048
     Dates: start: 2016, end: 20171220
  11. DIFFU K [Concomitant]
     Active Substance: POTASSIUM CHLORIDE
  12. LEVOTHYROX [Concomitant]
     Active Substance: LEVOTHYROXINE
  13. RIVOTRIL [Concomitant]
     Active Substance: CLONAZEPAM
  14. PREVISCAN [Concomitant]
  15. EUPRESSYL [Concomitant]
     Active Substance: URAPIDIL
  16. ZYLORIC [Concomitant]
     Active Substance: ALLOPURINOL
  17. INSULINE [Concomitant]
     Active Substance: INSULIN NOS
  18. VENTOLINE [Concomitant]
     Active Substance: ALBUTEROL
  19. UN-ALFA [Concomitant]
     Active Substance: ALFACALCIDOL

REACTIONS (2)
  - Hypocalcaemia [Recovered/Resolved]
  - Hypomagnesaemia [Recovered/Resolved]

NARRATIVE: CASE EVENT DATE: 20171210
